FAERS Safety Report 6933232-9 (Version None)
Quarter: 2010Q3

REPORT INFORMATION
  Report Type: 
  Country: None (occurrence: None)
  Receive Date: 20100820
  Receipt Date: 20100811
  Transmission Date: 20110219
  Serious: Yes (Other)
  Sender: FDA-Public Use
  Company Number: US-ELI_LILLY_AND_COMPANY-US201008003148

PATIENT
  Sex: Female
  Weight: 63.492 kg

DRUGS (3)
  1. BYETTA [Suspect]
     Indication: TYPE 2 DIABETES MELLITUS
     Dosage: 5 UG, 2/D
     Route: 058
  2. CORTISONE ACETATE [Concomitant]
     Indication: ARTHRITIS
     Route: 008
  3. METFORMIN HCL [Concomitant]

REACTIONS (14)
  - ARTHRITIS [None]
  - BLOOD GLUCOSE DECREASED [None]
  - BLOOD GLUCOSE INCREASED [None]
  - CHONDROPATHY [None]
  - DECREASED APPETITE [None]
  - DEPRESSED MOOD [None]
  - GLYCOSYLATED HAEMOGLOBIN INCREASED [None]
  - HYPERTENSION [None]
  - INJECTION SITE PAIN [None]
  - NERVE COMPRESSION [None]
  - SPINAL COMPRESSION FRACTURE [None]
  - VEIN DISORDER [None]
  - VISUAL ACUITY REDUCED [None]
  - WEIGHT DECREASED [None]
